FAERS Safety Report 5167007-0 (Version None)
Quarter: 2006Q4

REPORT INFORMATION
  Report Type: 
  Country: None (occurrence: None)
  Receive Date: 20061201
  Receipt Date: 20061201
  Transmission Date: 20070319
  Serious: No
  Sender: FDA-Public Use
  Company Number: None

PATIENT
  Age: 64 Year
  Sex: Female

DRUGS (2)
  1. MULTIHANCE [Suspect]
     Indication: NUCLEAR MAGNETIC RESONANCE IMAGING
     Dosage: 0.23 MMOL/KG ONCE IV
     Route: 042
     Dates: start: 20060311, end: 20060311
  2. OMNISCAN [Suspect]
     Indication: NUCLEAR MAGNETIC RESONANCE IMAGING
     Dosage: 0.23 MMOL/KG ONCE IV
     Route: 042
     Dates: start: 20060314, end: 20060314

REACTIONS (1)
  - NEPHROGENIC FIBROSING DERMOPATHY [None]
